FAERS Safety Report 25129306 (Version 1)
Quarter: 2025Q1

REPORT INFORMATION
  Report Type: Spontaneous
  Country: US (occurrence: US)
  Receive Date: 20250327
  Receipt Date: 20250327
  Transmission Date: 20250408
  Serious: No
  Sender: ROCHE
  Company Number: US-ROCHE-10000239664

PATIENT
  Sex: Male
  Weight: 71.21 kg

DRUGS (1)
  1. HEMLIBRA [Suspect]
     Active Substance: EMICIZUMAB-KXWH
     Indication: Factor VIII deficiency
     Dosage: EITHER -NOV-2021, -DEC-2021, OR -JAN-2022? MOST RECENT DOSE OF HEMLIBRA WAS ON 14-MAR-2025
     Route: 058

REACTIONS (2)
  - Haemorrhage [Recovered/Resolved]
  - Tooth disorder [Unknown]
